FAERS Safety Report 19453478 (Version 1)
Quarter: 2021Q2

REPORT INFORMATION
  Report Type: Report from Study
  Country: IT (occurrence: IT)
  Receive Date: 20210623
  Receipt Date: 20210623
  Transmission Date: 20210717
  Serious: Yes (Other)
  Sender: FDA-Public Use
  Company Number: IT-ACCORD-229150

PATIENT
  Age: 58 Year
  Sex: Female

DRUGS (2)
  1. OKI [Concomitant]
     Active Substance: KETOPROFEN LYSINE
     Indication: ABDOMINAL PAIN
     Route: 048
     Dates: start: 20210320, end: 20210320
  2. CARBOPLATIN. [Suspect]
     Active Substance: CARBOPLATIN
     Indication: OVARIAN CANCER
     Route: 042
     Dates: start: 20210304, end: 20210304

REACTIONS (4)
  - Faeces hard [Recovering/Resolving]
  - Abdominal pain [Recovering/Resolving]
  - Diarrhoea [Recovering/Resolving]
  - Flatulence [Recovering/Resolving]

NARRATIVE: CASE EVENT DATE: 20210320
